FAERS Safety Report 12913107 (Version 1)
Quarter: 2016Q4

REPORT INFORMATION
  Report Type: Spontaneous
  Country: US (occurrence: US)
  Receive Date: 20161104
  Receipt Date: 20161104
  Transmission Date: 20170207
  Serious: No
  Sender: FDA-Public Use
  Company Number: US-ANACOR-2016ANA00231

PATIENT
  Age: 59 Year
  Sex: Male
  Weight: 136.5 kg

DRUGS (2)
  1. KERYDIN [Suspect]
     Active Substance: TAVABOROLE
     Indication: ONYCHOMYCOSIS
     Dosage: UNK, 1X/DAY
     Route: 061
     Dates: end: 20160617
  2. KERYDIN [Suspect]
     Active Substance: TAVABOROLE
     Dosage: UNK, 1X/DAY
     Route: 061
     Dates: start: 20160701

REACTIONS (4)
  - Onychomadesis [Not Recovered/Not Resolved]
  - Drug ineffective [Unknown]
  - Therapy cessation [Recovered/Resolved]
  - Application site discolouration [Not Recovered/Not Resolved]

NARRATIVE: CASE EVENT DATE: 20160617
